FAERS Safety Report 7599941-6 (Version None)
Quarter: 2011Q3

REPORT INFORMATION
  Report Type: 
  Country: None (occurrence: None)
  Receive Date: 20110711
  Receipt Date: 20110629
  Transmission Date: 20111222
  Serious: Yes (Death, Hospitalization, Other)
  Sender: FDA-Public Use
  Company Number: JP-JNJFOC-20091107921

PATIENT
  Sex: Female
  Weight: 50 kg

DRUGS (23)
  1. FENTANYL [Concomitant]
     Route: 062
     Dates: start: 20090731, end: 20090817
  2. LAXOBERON [Concomitant]
     Route: 048
     Dates: start: 20090711, end: 20090907
  3. GABAPENTIN [Concomitant]
     Route: 048
     Dates: start: 20090711, end: 20090901
  4. FENTANYL [Concomitant]
     Route: 062
     Dates: start: 20090818, end: 20091129
  5. DOXORUBICIN HCL [Suspect]
     Indication: OVARIAN CANCER RECURRENT
     Dosage: CYCLE 4
     Route: 042
     Dates: start: 20100108, end: 20100108
  6. DOXORUBICIN HCL [Suspect]
     Dosage: CYCLE 2
     Route: 042
     Dates: start: 20090817, end: 20090817
  7. OXYCONTIN [Suspect]
     Indication: ILL-DEFINED DISORDER
     Route: 048
     Dates: start: 20090630, end: 20090731
  8. MORPHINE HCL ELIXIR [Suspect]
     Indication: ILL-DEFINED DISORDER
     Dosage: PRN
     Route: 048
     Dates: start: 20090904
  9. LOXONIN [Concomitant]
     Route: 048
     Dates: start: 20090630, end: 20091125
  10. OXINORM [Concomitant]
     Route: 048
     Dates: start: 20090711, end: 20090903
  11. MUCOSTA [Concomitant]
     Route: 048
     Dates: start: 20090711, end: 20091125
  12. VITAMIN B6 [Concomitant]
     Indication: PROPHYLAXIS
     Route: 048
     Dates: start: 20090721, end: 20090830
  13. FENTANYL [Concomitant]
     Indication: ILL-DEFINED DISORDER
     Route: 062
     Dates: start: 20091130
  14. BETAMETHASONE [Concomitant]
     Indication: PROPHYLAXIS
     Route: 042
     Dates: start: 20090722, end: 20090722
  15. FAMOSTAGINE [Concomitant]
     Indication: PROPHYLAXIS
     Route: 042
     Dates: start: 20090722, end: 20090722
  16. RIBOFLAVIN TAB [Concomitant]
     Indication: PROPHYLAXIS
     Route: 048
     Dates: start: 20090721, end: 20090830
  17. DOXORUBICIN HCL [Suspect]
     Dosage: CYCLE 1
     Route: 042
     Dates: start: 20090722, end: 20090722
  18. AZULENE [Concomitant]
     Indication: PROPHYLAXIS
     Route: 049
     Dates: start: 20090721, end: 20090830
  19. SEROTONE [Concomitant]
     Indication: PROPHYLAXIS
     Route: 042
     Dates: start: 20090722, end: 20090722
  20. DOXORUBICIN HCL [Suspect]
     Dosage: CYCLE 3
     Route: 042
     Dates: start: 20091016, end: 20091016
  21. LENDORMIN [Concomitant]
     Route: 048
     Dates: start: 20090721, end: 20091125
  22. MAGMITT [Concomitant]
     Route: 048
     Dates: start: 20090711, end: 20091125
  23. LAXOBERON [Concomitant]
     Indication: CONSTIPATION
     Route: 048
     Dates: start: 20090908

REACTIONS (5)
  - DISSEMINATED INTRAVASCULAR COAGULATION [None]
  - INTESTINAL OBSTRUCTION [None]
  - OVARIAN CANCER [None]
  - LIVER DISORDER [None]
  - PULMONARY EMBOLISM [None]
